FAERS Safety Report 23541386 (Version 4)
Quarter: 2024Q4

REPORT INFORMATION
  Report Type: Spontaneous
  Country: CA (occurrence: CA)
  Receive Date: 20240219
  Receipt Date: 20241021
  Transmission Date: 20250115
  Serious: Yes (Other)
  Sender: SANDOZ
  Company Number: CA-002147023-PHHY2016CA108834

PATIENT
  Age: 59 Year
  Sex: Male
  Weight: 89 kg

DRUGS (20)
  1. AMLODIPINE BESYLATE [Suspect]
     Active Substance: AMLODIPINE BESYLATE
     Indication: Product used for unknown indication
     Dosage: UNK
     Route: 065
  2. IMODIUM [Suspect]
     Active Substance: LOPERAMIDE HYDROCHLORIDE
     Indication: Product used for unknown indication
     Dosage: UNK
     Route: 065
  3. METFORMIN HYDROCHLORIDE [Suspect]
     Active Substance: METFORMIN HYDROCHLORIDE
     Indication: Product used for unknown indication
     Dosage: UNK UNK, BID
     Route: 065
  4. ROSUVASTATIN [Suspect]
     Active Substance: ROSUVASTATIN
     Indication: Product used for unknown indication
     Dosage: 5 MG, QHS
     Route: 065
  5. SANDOSTATIN [Suspect]
     Active Substance: OCTREOTIDE ACETATE
     Indication: Carcinoid tumour
     Dosage: 20 MG, Q4W
     Route: 030
  6. SANDOSTATIN [Suspect]
     Active Substance: OCTREOTIDE ACETATE
     Indication: Neuroendocrine tumour
     Dosage: 20 MG, Q4W
     Route: 030
  7. SANDOSTATIN [Suspect]
     Active Substance: OCTREOTIDE ACETATE
     Indication: Neuroendocrine tumour
     Dosage: 20 MG, Q4W
     Route: 030
  8. SANDOSTATIN LAR DEPOT [Suspect]
     Active Substance: OCTREOTIDE ACETATE
     Indication: Neuroendocrine tumour
     Dosage: 20 MG, Q4W
     Route: 030
     Dates: start: 20150904
  9. SANDOSTATIN LAR DEPOT [Suspect]
     Active Substance: OCTREOTIDE ACETATE
     Indication: Carcinoid tumour
     Dosage: 20 MG, Q4W (EVERY 4 WEEKS)
     Route: 030
     Dates: start: 20150904, end: 20160825
  10. SANDOSTATIN LAR DEPOT [Suspect]
     Active Substance: OCTREOTIDE ACETATE
     Indication: Neuroendocrine tumour
     Dosage: 20 MG, Q4W (EVERY 4 WEEKS)
     Route: 030
     Dates: start: 20160922
  11. ZOPICLONE [Suspect]
     Active Substance: ZOPICLONE
     Indication: Product used for unknown indication
     Dosage: UNK
     Route: 065
  12. ACCUPRIL [Concomitant]
     Active Substance: QUINAPRIL HYDROCHLORIDE
     Indication: Product used for unknown indication
     Dosage: UNK
     Route: 065
  13. ALTACE [Concomitant]
     Active Substance: RAMIPRIL
     Indication: Product used for unknown indication
     Dosage: 5 MG, BID
     Route: 065
  14. GLYBURIDE [Concomitant]
     Active Substance: GLYBURIDE
     Indication: Product used for unknown indication
     Dosage: 5 MG, BID
     Route: 065
     Dates: start: 20161201
  15. HYDROCHLOROTHIAZIDE [Concomitant]
     Active Substance: HYDROCHLOROTHIAZIDE
     Indication: Product used for unknown indication
     Dosage: 25 MG, QD
     Route: 065
     Dates: start: 2015
  16. LUTETIUM LU-177 [Concomitant]
     Active Substance: LUTETIUM LU-177
     Dosage: UNK
     Route: 065
     Dates: start: 20170302
  17. LUTETIUM LU-177 [Concomitant]
     Active Substance: LUTETIUM LU-177
     Dosage: UNK
     Route: 065
     Dates: start: 20180919
  18. LUTETIUM LU-177 [Concomitant]
     Active Substance: LUTETIUM LU-177
     Indication: Product used for unknown indication
     Dosage: UNK (EVERY 9 WEEKS)
     Route: 065
     Dates: start: 2016
  19. QUINAPRIL [Concomitant]
     Active Substance: QUINAPRIL
     Indication: Product used for unknown indication
     Dosage: UNK
     Route: 065
  20. LINAGLIPTIN [Concomitant]
     Active Substance: LINAGLIPTIN
     Indication: Product used for unknown indication
     Dosage: 5 MG, QD
     Route: 065
     Dates: start: 20171018, end: 2017

REACTIONS (28)
  - Hepatic neoplasm [Unknown]
  - Neoplasm [Recovering/Resolving]
  - Syncope [Unknown]
  - Arteriosclerosis coronary artery [Unknown]
  - Diarrhoea [Unknown]
  - Blood pressure systolic increased [Unknown]
  - Blood pressure diastolic decreased [Unknown]
  - Blood follicle stimulating hormone increased [Unknown]
  - Blood potassium decreased [Unknown]
  - Low density lipoprotein decreased [Unknown]
  - 5-hydroxyindolacetic acid increased [Unknown]
  - Blood mercury abnormal [Unknown]
  - Nausea [Unknown]
  - Gamma-glutamyltransferase increased [Unknown]
  - Vomiting [Unknown]
  - Urticaria [Recovered/Resolved]
  - Pruritus [Unknown]
  - Blood glucose increased [Recovering/Resolving]
  - Fibrous histiocytoma [Unknown]
  - Movement disorder [Unknown]
  - Aspartate aminotransferase increased [Unknown]
  - Glycosylated haemoglobin increased [Recovering/Resolving]
  - Platelet count decreased [Recovering/Resolving]
  - Haemoglobin decreased [Recovering/Resolving]
  - Haematocrit decreased [Recovering/Resolving]
  - Red blood cell count decreased [Recovering/Resolving]
  - Expired product administered [Unknown]
  - Inappropriate schedule of product administration [Unknown]

NARRATIVE: CASE EVENT DATE: 20150904
